FAERS Safety Report 5622592-7 (Version None)
Quarter: 2008Q1

REPORT INFORMATION
  Report Type: 
  Country: None (occurrence: None)
  Receive Date: 20080211
  Receipt Date: 20080211
  Transmission Date: 20080703
  Serious: No
  Sender: FDA-Public Use
  Company Number: None

PATIENT
  Age: 19 Year
  Sex: Female

DRUGS (1)
  1. VIGAMOX [Suspect]
     Dosage: 3MLS  1 DROP 3 TIMES/DAY  EYE DROP
     Route: 047
     Dates: start: 20080206, end: 20080207

REACTIONS (1)
  - APPLICATION SITE IRRITATION [None]
